FAERS Safety Report 24253719 (Version 2)
Quarter: 2024Q3

REPORT INFORMATION
  Report Type: Spontaneous
  Country: US (occurrence: US)
  Receive Date: 20240827
  Receipt Date: 20240828
  Transmission Date: 20241016
  Serious: No
  Sender: BIOGEN
  Company Number: US-BIOGEN-2024BI01279154

PATIENT
  Sex: Female
  Weight: 82.174 kg

DRUGS (1)
  1. VUMERITY [Suspect]
     Active Substance: DIROXIMEL FUMARATE
     Indication: Multiple sclerosis
     Route: 050
     Dates: start: 20220326

REACTIONS (4)
  - Multiple sclerosis [Not Recovered/Not Resolved]
  - Flushing [Unknown]
  - Pruritus [Unknown]
  - Urticaria [Recovered/Resolved]
